FAERS Safety Report 8432267-7 (Version None)
Quarter: 2012Q2

REPORT INFORMATION
  Report Type: 
  Country: None (occurrence: None)
  Receive Date: 20120607
  Receipt Date: 20120525
  Transmission Date: 20120825
  Serious: Yes (Other)
  Sender: FDA-Public Use
  Company Number: ADR-2012-01026

PATIENT
  Age: 17 Year
  Sex: Male

DRUGS (1)
  1. BACLOFEN [Suspect]
     Route: 037

REACTIONS (2)
  - IMPLANT SITE SWELLING [None]
  - HAEMATOMA [None]
